FAERS Safety Report 4390402-4 (Version None)
Quarter: 2004Q2

REPORT INFORMATION
  Report Type: 
  Country: None (occurrence: None)
  Receive Date: 20040630
  Receipt Date: 20040616
  Transmission Date: 20050107
  Serious: No
  Sender: FDA-Public Use
  Company Number: 02100-JPN-04-0147

PATIENT
  Age: 95 Year
  Sex: Male

DRUGS (8)
  1. CILOSTAZOL [Suspect]
     Indication: ARTERIAL OCCLUSIVE DISEASE
     Dosage: 200 MG
     Route: 048
     Dates: start: 20040514, end: 20040517
  2. TAMSULOSIN HYDROCHLORIDE [Suspect]
     Indication: BENIGN PROSTATIC HYPERPLASIA
     Dosage: 0.2 MG
     Route: 048
     Dates: start: 20000901
  3. ALUMINUM HYDROXIDE/MAGNESIUM HYDROXIDE [Concomitant]
  4. ALLOPURINOL [Concomitant]
  5. ENALAPRIL MALEATE [Concomitant]
  6. AMLODIPINE BESYLATE [Concomitant]
  7. LORMETAZEPAM [Concomitant]
  8. FUROSEMIDE [Concomitant]

REACTIONS (3)
  - DRUG INTERACTION [None]
  - PAIN IN EXTREMITY [None]
  - URINARY RETENTION [None]
